FAERS Safety Report 24358147 (Version 1)
Quarter: 2024Q3

REPORT INFORMATION
  Report Type: Spontaneous
  Country: US (occurrence: None)
  Receive Date: 20240923
  Receipt Date: 20240923
  Transmission Date: 20241017
  Serious: Yes (Life-Threatening, Hospitalization, Other)
  Sender: Public
  Company Number: None

PATIENT
  Age: 54 Year
  Sex: Female
  Weight: 46.8 kg

DRUGS (18)
  1. LEVAQUIN [Suspect]
     Active Substance: LEVOFLOXACIN
     Indication: Diverticulitis
     Dosage: 1 CAPSULE ORAL
     Route: 048
     Dates: start: 20240807, end: 20240908
  2. LEVAQUIN [Suspect]
     Active Substance: LEVOFLOXACIN
     Indication: Diverticulum
  3. METRONIDAZOLE [Suspect]
     Active Substance: METRONIDAZOLE
  4. TACROLIMUS [Concomitant]
     Active Substance: TACROLIMUS
  5. MYCOPHENOLATE MOFETIL [Concomitant]
     Active Substance: MYCOPHENOLATE MOFETIL
  6. ENALAPRIL [Concomitant]
     Active Substance: ENALAPRIL
  7. PROZAC [Concomitant]
     Active Substance: FLUOXETINE HYDROCHLORIDE
  8. LEVOTHYROXINE [Concomitant]
     Active Substance: LEVOTHYROXINE\LEVOTHYROXINE SODIUM
  9. MAGNESIUM [Concomitant]
     Active Substance: MAGNESIUM
  10. ROSUVASTATIN [Concomitant]
     Active Substance: ROSUVASTATIN\ROSUVASTATIN CALCIUM
  11. ipatropium-albuterol [Concomitant]
  12. PREDNISONE [Concomitant]
     Active Substance: PREDNISONE
  13. dexcom G7 [Concomitant]
  14. continuous glucose monitor sensor [Concomitant]
  15. allegra 24hr [Concomitant]
  16. VITAMIN E [Concomitant]
     Active Substance: .ALPHA.-TOCOPHEROL
  17. VITAMIN B12 [Concomitant]
     Active Substance: CYANOCOBALAMIN
  18. CALCIUM\CHOLECALCIFEROL [Concomitant]
     Active Substance: CALCIUM\CHOLECALCIFEROL

REACTIONS (6)
  - Mental status changes [None]
  - Diarrhoea [None]
  - Vomiting [None]
  - Catatonia [None]
  - Dissociative disorder [None]
  - Dehydration [None]

NARRATIVE: CASE EVENT DATE: 20240909
